FAERS Safety Report 9165322 (Version 1)
Quarter: 2013Q1

REPORT INFORMATION
  Report Type: Spontaneous
  Country: US (occurrence: US)
  Receive Date: 20130315
  Receipt Date: 20130315
  Transmission Date: 20140127
  Serious: Yes (Hospitalization)
  Sender: FDA-Public Use
  Company Number: US-BRISTOL-MYERS SQUIBB COMPANY-17458829

PATIENT
  Age: 85 Year
  Sex: Male

DRUGS (5)
  1. ORENCIA [Suspect]
     Indication: RHEUMATOID ARTHRITIS
     Route: 042
  2. ARAVA [Concomitant]
  3. TRAMADOL [Concomitant]
  4. PREDNISONE [Concomitant]
  5. WARFARIN [Concomitant]

REACTIONS (2)
  - Interstitial lung disease [Unknown]
  - Tinea pedis [Unknown]
